FAERS Safety Report 13577420 (Version 2)
Quarter: 2018Q1

REPORT INFORMATION
  Report Type: Report from Study
  Country: CA (occurrence: CA)
  Receive Date: 20170524
  Receipt Date: 20180312
  Transmission Date: 20180508
  Serious: Yes (Hospitalization)
  Sender: FDA-Public Use
  Company Number: CA-JNJFOC-20170515283

PATIENT
  Age: 60 Year
  Sex: Male
  Weight: 123 kg

DRUGS (1)
  1. REMICADE [Suspect]
     Active Substance: INFLIXIMAB
     Indication: PSORIASIS
     Route: 042
     Dates: start: 2007, end: 20180103

REACTIONS (4)
  - Neoplasm skin [Unknown]
  - Product use issue [Unknown]
  - Off label use [Unknown]
  - Infection [Unknown]

NARRATIVE: CASE EVENT DATE: 20170510
